FAERS Safety Report 5632318-9 (Version None)
Quarter: 2008Q1

REPORT INFORMATION
  Report Type: 
  Country: None (occurrence: None)
  Receive Date: 20080131
  Receipt Date: 20071002
  Transmission Date: 20080703
  Serious: No
  Sender: FDA-Public Use
  Company Number: 163-21880-07100259

PATIENT
  Age: 48 Year
  Sex: Male

DRUGS (2)
  1. REVLIMID [Suspect]
     Indication: MULTIPLE MYELOMA
     Dosage: 10, 25  MG, 1 IN 1 D, ORAL
     Route: 048
     Dates: start: 20060724, end: 20060801
  2. REVLIMID [Suspect]
     Indication: MULTIPLE MYELOMA
     Dosage: 10, 25  MG, 1 IN 1 D, ORAL
     Route: 048
     Dates: start: 20060818

REACTIONS (1)
  - TREATMENT FAILURE [None]
